FAERS Safety Report 21044202 (Version 1)
Quarter: 2022Q3

REPORT INFORMATION
  Report Type: Spontaneous
  Country: CN (occurrence: CN)
  Receive Date: 20220705
  Receipt Date: 20220705
  Transmission Date: 20221027
  Serious: Yes (Other)
  Sender: FDA-Public Use
  Company Number: CN-Merck Healthcare KGaA-9332489

PATIENT
  Age: 75 Year
  Sex: Male
  Weight: 60 kg

DRUGS (8)
  1. ERBITUX [Suspect]
     Active Substance: CETUXIMAB
     Indication: Colon cancer
     Dosage: 160 ML, DAILY (ALONG WITH NORMAL SALINE 250 ML)
     Route: 041
     Dates: start: 20220617, end: 20220617
  2. FLUOROURACIL [Suspect]
     Active Substance: FLUOROURACIL
     Indication: Colon cancer
     Dosage: 0.75 G, DAILY (ALONG WITH NORMAL SALINE 100 ML)
     Route: 041
     Dates: start: 20220617, end: 20220617
  3. FLUOROURACIL [Suspect]
     Active Substance: FLUOROURACIL
     Dosage: 3.75 G, DAILY (ALONG WITH NORMAL SALINE 230 ML)
     Route: 041
     Dates: start: 20220617, end: 20220617
  4. IRINOTECAN [Suspect]
     Active Substance: IRINOTECAN
     Indication: Colon cancer
     Dosage: 15 ML, DAILY (ALONG WITH NORMAL SALINE 250 ML)
     Route: 041
     Dates: start: 20220617, end: 20220617
  5. SODIUM CHLORIDE [Concomitant]
     Active Substance: SODIUM CHLORIDE
     Indication: Medication dilution
     Dosage: 250 ML, DAILY
     Route: 041
     Dates: start: 20220617, end: 20220617
  6. SODIUM CHLORIDE [Concomitant]
     Active Substance: SODIUM CHLORIDE
     Dosage: 100 ML, DAILY
     Route: 041
     Dates: start: 20220617, end: 20220617
  7. SODIUM CHLORIDE [Concomitant]
     Active Substance: SODIUM CHLORIDE
     Dosage: 230 ML, DAILY
     Route: 042
     Dates: start: 20220617, end: 20220617
  8. SODIUM CHLORIDE [Concomitant]
     Active Substance: SODIUM CHLORIDE
     Dosage: 250 ML, DAILY
     Route: 041
     Dates: start: 20220617, end: 20220617

REACTIONS (3)
  - Granulocyte count decreased [Recovered/Resolved]
  - White blood cell count decreased [Recovered/Resolved]
  - Diarrhoea [Recovered/Resolved]

NARRATIVE: CASE EVENT DATE: 20220620
